FAERS Safety Report 10965115 (Version 1)
Quarter: 2015Q1

REPORT INFORMATION
  Report Type: Spontaneous
  Country: US (occurrence: None)
  Receive Date: 20150327
  Receipt Date: 20150327
  Transmission Date: 20150721
  Serious: Yes (Other)
  Sender: FDA-Public Use
  Company Number: None

PATIENT
  Sex: Female
  Weight: 75 kg

DRUGS (3)
  1. NTG AGE INTEN DEEP WRINKLE SERUM [Suspect]
     Active Substance: COSMETICS
     Indication: SKIN WRINKLING
     Dosage: A QUIRT, 1XA DAYM TOPICAL
     Route: 061
  2. BENADRYL [Concomitant]
     Active Substance: DIPHENHYDRAMINE HYDROCHLORIDE
  3. NTG AGE INTEN DEEP WRINKLE MOIST NIGHT [Suspect]
     Active Substance: COSMETICS
     Indication: SKIN WRINKLING
     Dosage: HALF DIME, 1XADAY, TOPICAL
     Route: 061
     Dates: start: 20150308, end: 20150308

REACTIONS (4)
  - Application site pruritus [None]
  - Application site hypersensitivity [None]
  - Application site rash [None]
  - Application site erythema [None]

NARRATIVE: CASE EVENT DATE: 20150308
